FAERS Safety Report 7403717-X (Version None)
Quarter: 2011Q1

REPORT INFORMATION
  Report Type: 
  Country: None (occurrence: None)
  Receive Date: 20110330
  Receipt Date: 20110315
  Transmission Date: 20110831
  Serious: Yes (Hospitalization)
  Sender: FDA-Public Use
  Company Number: 2010US000085

PATIENT
  Age: 18 Year
  Sex: Female

DRUGS (1)
  1. ENTEREG [Suspect]
     Indication: POSTOPERATIVE ILEUS
     Dosage: MG; PO
     Route: 048
     Dates: start: 20100722, end: 20100729

REACTIONS (3)
  - VOMITING [None]
  - NAUSEA [None]
  - ABDOMINAL DISTENSION [None]
